FAERS Safety Report 25747966 (Version 2)
Quarter: 2025Q4

REPORT INFORMATION
  Report Type: Spontaneous
  Country: MA (occurrence: MA)
  Receive Date: 20250901
  Receipt Date: 20251008
  Transmission Date: 20260117
  Serious: Yes (Death, Congenital Anomaly)
  Sender: BIOGEN
  Company Number: MA-BIOGEN-2025BI01322533

PATIENT

DRUGS (2)
  1. TYSABRI [Suspect]
     Active Substance: NATALIZUMAB
     Indication: Maternal exposure timing unspecified
     Route: 050
     Dates: start: 2021
  2. PREGABALIN [Concomitant]
     Active Substance: PREGABALIN
     Indication: Maternal exposure timing unspecified
     Route: 050

REACTIONS (4)
  - Death neonatal [Fatal]
  - Heart disease congenital [Unknown]
  - Premature baby [Unknown]
  - Foetal exposure during pregnancy [Recovered/Resolved]
